FAERS Safety Report 21862268 (Version 2)
Quarter: 2023Q1

REPORT INFORMATION
  Report Type: Spontaneous
  Country: JP (occurrence: JP)
  Receive Date: 20230114
  Receipt Date: 20230206
  Transmission Date: 20230418
  Serious: Yes (Death, Life-Threatening, Hospitalization, Other)
  Sender: FDA-Public Use
  Company Number: None

PATIENT
  Age: 68 Year
  Sex: Female
  Weight: 39 kg

DRUGS (10)
  1. PREDNISOLONE [Suspect]
     Active Substance: PREDNISOLONE
     Indication: Nephrotic syndrome
     Dosage: 30 MILLIGRAM, PER DAY
     Route: 065
  2. PREDNISOLONE [Suspect]
     Active Substance: PREDNISOLONE
     Indication: Cryoglobulinaemia
     Dosage: 5 MILLIGRAM, PER DAY
     Route: 065
  3. PREDNISOLONE [Suspect]
     Active Substance: PREDNISOLONE
     Indication: Immunosuppressant drug therapy
     Dosage: 30 MILLIGRAM, PER DAY
     Route: 065
  4. PREDNISOLONE [Suspect]
     Active Substance: PREDNISOLONE
     Dosage: UNK, GRADUALLY REDUCED
     Route: 065
  5. MIZORIBINE [Suspect]
     Active Substance: MIZORIBINE
     Indication: Cryoglobulinaemia
     Dosage: 100 MILLIGRAM, PER DAY
     Route: 065
  6. MIZORIBINE [Suspect]
     Active Substance: MIZORIBINE
     Indication: Immunosuppressant drug therapy
  7. MIZORIBINE [Suspect]
     Active Substance: MIZORIBINE
     Indication: Nephrotic syndrome
  8. METHYLPREDNISOLONE [Suspect]
     Active Substance: METHYLPREDNISOLONE
     Indication: Nephrotic syndrome
     Dosage: 500 MILLIGRAM, STEROID PULSE THERAPY; PER DAY
     Route: 065
  9. METHYLPREDNISOLONE [Suspect]
     Active Substance: METHYLPREDNISOLONE
     Indication: Cryoglobulinaemia
  10. METHYLPREDNISOLONE [Suspect]
     Active Substance: METHYLPREDNISOLONE
     Indication: Immunosuppressant drug therapy

REACTIONS (15)
  - Disseminated intravascular coagulation [Fatal]
  - Shock [Fatal]
  - Respiratory failure [Fatal]
  - Haemophagocytic lymphohistiocytosis [Fatal]
  - Multiple organ dysfunction syndrome [Fatal]
  - Necrosis [Fatal]
  - Herpes zoster disseminated [Fatal]
  - Abscess [Fatal]
  - Pulmonary oedema [Fatal]
  - Herpes zoster reactivation [Fatal]
  - Liver disorder [Unknown]
  - Renal disorder [Unknown]
  - Renal failure [Unknown]
  - Sepsis [Unknown]
  - Pneumonia [Unknown]
